FAERS Safety Report 18419455 (Version 1)
Quarter: 2020Q4

REPORT INFORMATION
  Report Type: Spontaneous
  Country: CN (occurrence: CN)
  Receive Date: 20201023
  Receipt Date: 20201023
  Transmission Date: 20210114
  Serious: Yes (Life-Threatening, Hospitalization, Other)
  Sender: FDA-Public Use
  Company Number: CN-ACCORD-205826

PATIENT
  Age: 67 Year
  Sex: Male

DRUGS (1)
  1. GEMCITABINE. [Suspect]
     Active Substance: GEMCITABINE
     Indication: TRANSITIONAL CELL CARCINOMA
     Dosage: 0.57 G/M2 INTRAVESICAL INSTILLATION AT A DOSAGE OF 1.0 G PER 1.75 M^2 EVERY 2 WK
     Route: 043

REACTIONS (3)
  - Traumatic lung injury [Recovering/Resolving]
  - Acute respiratory distress syndrome [Recovering/Resolving]
  - Pneumonitis [Recovering/Resolving]
